FAERS Safety Report 7036825-6 (Version None)
Quarter: 2010Q4

REPORT INFORMATION
  Report Type: 
  Country: None (occurrence: None)
  Receive Date: 20101011
  Receipt Date: 20101004
  Transmission Date: 20110411
  Serious: Yes (Other)
  Sender: FDA-Public Use
  Company Number: US-ELI_LILLY_AND_COMPANY-US201005000613

PATIENT
  Sex: Female
  Weight: 59.864 kg

DRUGS (4)
  1. BYETTA [Suspect]
     Dosage: UNK, UNKNOWN
     Dates: start: 20050901, end: 20100201
  2. LIPITOR [Concomitant]
     Indication: BLOOD CHOLESTEROL
  3. NOVOLOG [Concomitant]
     Indication: DIABETES MELLITUS
  4. TYLENOL (CAPLET) [Concomitant]
     Indication: PAIN

REACTIONS (4)
  - ANAEMIA [None]
  - OFF LABEL USE [None]
  - PANCREATITIS [None]
  - RENAL FAILURE [None]
